FAERS Safety Report 4747763-3 (Version None)
Quarter: 2005Q3

REPORT INFORMATION
  Report Type: 
  Country: None (occurrence: None)
  Receive Date: 20050816
  Receipt Date: 20050729
  Transmission Date: 20060218
  Serious: Yes (Hospitalization)
  Sender: FDA-Public Use
  Company Number: 430035N05USA

PATIENT
  Age: 45 Year
  Sex: Female
  Weight: 79 kg

DRUGS (10)
  1. NOVANTRONE [Suspect]
     Indication: MULTIPLE SCLEROSIS
     Dosage: 12 MG/M2, 1 IN 3 MONTHS, INTRAVENOUS (NOT OTHERWISE SPECIFIED)
     Route: 042
     Dates: start: 20020823, end: 20050324
  2. SIMVASTATIN [Concomitant]
  3. VENLAFAXINE HCL [Concomitant]
  4. TRAZODONE [Concomitant]
  5. CLONAZEPAM [Concomitant]
  6. LEVOTHYROXINE SODIUM [Concomitant]
  7. ESTRADIOL [Concomitant]
  8. GABAPENTIN [Concomitant]
  9. SERETIDE [Concomitant]
  10. MONTELUKAST      /01362601/ [Concomitant]

REACTIONS (13)
  - CARDIAC FAILURE CONGESTIVE [None]
  - CARDIAC MURMUR [None]
  - CARDIOMEGALY [None]
  - CARDIOMYOPATHY [None]
  - CYSTITIS [None]
  - DYSURIA [None]
  - MITRAL VALVE INCOMPETENCE [None]
  - POST PROCEDURAL COMPLICATION [None]
  - PULMONARY HYPERTENSION [None]
  - PULMONARY OEDEMA [None]
  - SINUS TACHYCARDIA [None]
  - URINARY TRACT INFECTION [None]
  - VENTRICULAR TACHYCARDIA [None]
